FAERS Safety Report 15304717 (Version 1)
Quarter: 2018Q3

REPORT INFORMATION
  Report Type: Report from Study
  Country: US (occurrence: US)
  Receive Date: 20180821
  Receipt Date: 20180821
  Transmission Date: 20181010
  Serious: Yes (Death, Hospitalization, Other)
  Sender: FDA-Public Use
  Company Number: US-PFIZER INC-2017529160

PATIENT
  Age: 74 Year
  Sex: Female
  Weight: 62 kg

DRUGS (5)
  1. FASLODEX [Suspect]
     Active Substance: FULVESTRANT
     Indication: BREAST CANCER FEMALE
     Dosage: UNK, MONTHLY (SHOTS) (ONCE A MONTH)
     Route: 030
     Dates: end: 201802
  2. IBRANCE [Suspect]
     Active Substance: PALBOCICLIB
     Indication: BREAST CANCER
     Dosage: 125 MG, CYCLIC (ONCE DAILY FOR 21 DAYS ON, THEN 1 WEEK OFF)
     Route: 048
     Dates: start: 20171204
  3. IBRANCE [Suspect]
     Active Substance: PALBOCICLIB
     Dosage: 100 MG, CYCLIC (FOR 21 DAYS)
     Route: 048
     Dates: end: 201802
  4. IBRANCE [Suspect]
     Active Substance: PALBOCICLIB
     Dosage: 125 MG, UNK
  5. IBRANCE [Suspect]
     Active Substance: PALBOCICLIB
     Dosage: UNK
     Dates: end: 20180215

REACTIONS (15)
  - Feeling hot [Unknown]
  - Fatigue [Not Recovered/Not Resolved]
  - Decreased appetite [Not Recovered/Not Resolved]
  - Somnolence [Unknown]
  - Cough [Not Recovered/Not Resolved]
  - Nasopharyngitis [Unknown]
  - Lumbar spinal stenosis [Unknown]
  - Neoplasm progression [Fatal]
  - Dehydration [Unknown]
  - Thrombosis [Unknown]
  - Pharyngeal disorder [Unknown]
  - Coordination abnormal [Unknown]
  - Weight decreased [Recovering/Resolving]
  - Drug intolerance [Unknown]
  - Condition aggravated [Not Recovered/Not Resolved]

NARRATIVE: CASE EVENT DATE: 201712
